FAERS Safety Report 24812500 (Version 1)
Quarter: 2025Q1

REPORT INFORMATION
  Report Type: Spontaneous
  Country: US (occurrence: US)
  Receive Date: 20250106
  Receipt Date: 20250106
  Transmission Date: 20250409
  Serious: Yes (Death)
  Sender: SANOFI AVENTIS
  Company Number: US-SA-2025SA002988

PATIENT
  Age: 93 Year
  Sex: Male

DRUGS (1)
  1. DUPIXENT [Suspect]
     Active Substance: DUPILUMAB
     Indication: Dermatitis atopic
     Dates: start: 20250101

REACTIONS (1)
  - Fall [Fatal]

NARRATIVE: CASE EVENT DATE: 20250102
